FAERS Safety Report 21834828 (Version 3)
Quarter: 2023Q1

REPORT INFORMATION
  Report Type: Spontaneous
  Country: US (occurrence: US)
  Receive Date: 20230108
  Receipt Date: 20230323
  Transmission Date: 20230417
  Serious: Yes (Other)
  Sender: FDA-Public Use
  Company Number: US-BIOGEN-2023BI01178786

PATIENT
  Age: 50 Year
  Sex: Female

DRUGS (1)
  1. TECFIDERA [Suspect]
     Active Substance: DIMETHYL FUMARATE
     Indication: Product used for unknown indication
     Dosage: MAINTENANCE DOSE
     Route: 050

REACTIONS (13)
  - Seizure [Unknown]
  - Multiple sclerosis relapse [Unknown]
  - Choking [Unknown]
  - Fall [Recovered/Resolved]
  - Central nervous system lesion [Unknown]
  - Nerve compression [Unknown]
  - Balance disorder [Unknown]
  - Pain [Unknown]
  - Asthenia [Unknown]
  - Memory impairment [Unknown]
  - Muscle tightness [Unknown]
  - Erythema [Unknown]
  - Feeling hot [Unknown]

NARRATIVE: CASE EVENT DATE: 20221201
